FAERS Safety Report 7946794-X (Version None)
Quarter: 2011Q4

REPORT INFORMATION
  Report Type: 
  Country: None (occurrence: None)
  Receive Date: 20111123
  Receipt Date: 20111109
  Transmission Date: 20120403
  Serious: Yes (Hospitalization)
  Sender: FDA-Public Use
  Company Number: 2011HGS-002820

PATIENT
  Age: 43 Year
  Sex: Female

DRUGS (12)
  1. VENTOLIN (SALBUTAMOL SULPHATE) [Concomitant]
  2. BENLYSTA [Suspect]
     Indication: SYSTEMIC LUPUS ERYTHEMATOSUS
     Dosage: 400 MG, INTRAVENOUS (NOT OTHERWISE SPECIFIED)
     Route: 042
     Dates: start: 20110930, end: 20110930
  3. PREDNISOLONE [Concomitant]
  4. SIMVASTATIN [Concomitant]
  5. ATACAND [Concomitant]
  6. CITODON (PARACETAMOL) [Concomitant]
  7. IDEOS (CALCIUM SALT, COLECALCIFEROL) [Concomitant]
  8. IMOVANE (ZOPICLONE) [Concomitant]
  9. MAGNESIUM (MAGNESIUM SALT) [Concomitant]
  10. OMEPRAZOLE [Concomitant]
  11. FOLACIN (FOLIC ACID) [Concomitant]
  12. PLENDIL [Concomitant]

REACTIONS (5)
  - PRURITUS [None]
  - TONGUE OEDEMA [None]
  - RASH [None]
  - ERYTHEMA [None]
  - COUGH [None]
